FAERS Safety Report 13519159 (Version 4)
Quarter: 2017Q2

REPORT INFORMATION
  Report Type: Report from Study
  Country: US (occurrence: US)
  Receive Date: 20170505
  Receipt Date: 20170524
  Transmission Date: 20170830
  Serious: Yes (Congenital Anomaly)
  Sender: FDA-Public Use
  Company Number: US-BIOGEN-2017BI00394761

PATIENT
  Age: 2 Month
  Sex: Female
  Weight: 4.07 kg

DRUGS (1)
  1. TECFIDERA [Suspect]
     Active Substance: DIMETHYL FUMARATE
     Indication: MULTIPLE SCLEROSIS
     Route: 064
     Dates: start: 201502, end: 20160726

REACTIONS (1)
  - Ventricular septal defect [Unknown]

NARRATIVE: CASE EVENT DATE: 20170425
